FAERS Safety Report 12802198 (Version 1)
Quarter: 2016Q4

REPORT INFORMATION
  Report Type: Spontaneous
  Country: US (occurrence: US)
  Receive Date: 20161003
  Receipt Date: 20161003
  Transmission Date: 20170207
  Serious: No
  Sender: FDA-Public Use
  Company Number: US-JAZZ-2016-US-012365

PATIENT
  Sex: Female

DRUGS (30)
  1. LASIX [Concomitant]
     Active Substance: FUROSEMIDE
  2. GEMFIBROZIL. [Concomitant]
     Active Substance: GEMFIBROZIL
  3. MUPIROCIN. [Concomitant]
     Active Substance: MUPIROCIN
  4. ALPRAZOLAM. [Concomitant]
     Active Substance: ALPRAZOLAM
  5. SPIRONOLACTONE. [Concomitant]
     Active Substance: SPIRONOLACTONE
  6. MIRAPEX [Concomitant]
     Active Substance: PRAMIPEXOLE DIHYDROCHLORIDE
  7. FOLIC ACID. [Concomitant]
     Active Substance: FOLIC ACID
  8. SERTRALINE HCL [Concomitant]
     Active Substance: SERTRALINE HYDROCHLORIDE
  9. OXYMORPHONE HCL [Concomitant]
     Active Substance: OXYMORPHONE HYDROCHLORIDE
  10. LISINOPRIL AND HYDROCHLOROTHIAZIDE [Concomitant]
     Active Substance: HYDROCHLOROTHIAZIDE\LISINOPRIL
  11. XANAX [Concomitant]
     Active Substance: ALPRAZOLAM
  12. ASPIRIN. [Concomitant]
     Active Substance: ASPIRIN
  13. PROVIGIL [Concomitant]
     Active Substance: MODAFINIL
  14. METOPROLOL. [Concomitant]
     Active Substance: METOPROLOL
  15. XYREM [Suspect]
     Active Substance: SODIUM OXYBATE
     Indication: CATAPLEXY
     Dosage: 3 G, BID
     Route: 048
     Dates: start: 201304, end: 201304
  16. LANTUS [Concomitant]
     Active Substance: INSULIN GLARGINE
  17. OXYCODONE [Concomitant]
     Active Substance: OXYCODONE
  18. METOPROLOL SUCCINATE. [Concomitant]
     Active Substance: METOPROLOL SUCCINATE
  19. SIMVASTATIN. [Concomitant]
     Active Substance: SIMVASTATIN
  20. CYANOCOBALAMIN. [Concomitant]
     Active Substance: CYANOCOBALAMIN
  21. XYREM [Suspect]
     Active Substance: SODIUM OXYBATE
     Dosage: 4.5 G, BID
     Route: 048
     Dates: start: 201304
  22. TRAMADOL HCL [Concomitant]
     Active Substance: TRAMADOL HYDROCHLORIDE
  23. GLIPIZIDE. [Concomitant]
     Active Substance: GLIPIZIDE
  24. METFORMIN HCL [Concomitant]
     Active Substance: METFORMIN HYDROCHLORIDE
  25. MIRTAZAPINE. [Concomitant]
     Active Substance: MIRTAZAPINE
  26. TIZANIDINE. [Concomitant]
     Active Substance: TIZANIDINE
  27. METHYLPREDNISOLONE. [Concomitant]
     Active Substance: METHYLPREDNISOLONE
  28. NYSTATIN. [Concomitant]
     Active Substance: NYSTATIN
  29. OMEPRAZOLE. [Concomitant]
     Active Substance: OMEPRAZOLE
  30. XYREM [Suspect]
     Active Substance: SODIUM OXYBATE
     Indication: NARCOLEPSY
     Dosage: 2.25 G, BID
     Route: 048
     Dates: start: 201303, end: 201304

REACTIONS (1)
  - Limb injury [Unknown]
